FAERS Safety Report 7881665-9 (Version None)
Quarter: 2011Q4

REPORT INFORMATION
  Report Type: 
  Country: None (occurrence: None)
  Receive Date: 20111101
  Receipt Date: 20110524
  Transmission Date: 20120403
  Serious: No
  Sender: FDA-Public Use
  Company Number: US-AMGEN-USASP2011026900

PATIENT
  Sex: Female

DRUGS (5)
  1. PREDNISONE [Concomitant]
  2. METHOTREXATE [Concomitant]
  3. ENBREL [Suspect]
     Indication: JUVENILE ARTHRITIS
     Dates: start: 20110501
  4. OMEPRAZOLE [Concomitant]
  5. FOLIC ACID [Concomitant]

REACTIONS (1)
  - COUGH [None]
